FAERS Safety Report 7975986-9 (Version None)
Quarter: 2011Q4

REPORT INFORMATION
  Report Type: 
  Country: None (occurrence: None)
  Receive Date: 20111213
  Receipt Date: 20111010
  Transmission Date: 20120403
  Serious: No
  Sender: FDA-Public Use
  Company Number: US-AMGEN-USASP2011052178

PATIENT
  Age: 77 Year
  Sex: Female

DRUGS (1)
  1. ENBREL [Suspect]
     Indication: PSORIASIS
     Dosage: 50 MG, 2 TIMES/WK
     Dates: start: 20070801, end: 20111005

REACTIONS (7)
  - EAR PAIN [None]
  - CHILLS [None]
  - EYELID PTOSIS [None]
  - OROPHARYNGEAL PAIN [None]
  - HEADACHE [None]
  - TONGUE DISCOLOURATION [None]
  - CATARACT OPERATION [None]
